FAERS Safety Report 11179235 (Version 1)
Quarter: 2015Q2

REPORT INFORMATION
  Report Type: Spontaneous
  Country: US (occurrence: US)
  Receive Date: 20150610
  Receipt Date: 20150610
  Transmission Date: 20150821
  Serious: No
  Sender: FDA-Public Use
  Company Number: US-009507513-1505USA014166

PATIENT
  Sex: Female

DRUGS (1)
  1. NASONEX [Suspect]
     Active Substance: MOMETASONE FUROATE
     Indication: RHINITIS
     Dosage: 50 MICROGRAM, UNK
     Route: 045

REACTIONS (3)
  - Product quality issue [Unknown]
  - Nasal congestion [Not Recovered/Not Resolved]
  - Drug dose omission [Unknown]
